FAERS Safety Report 8390073-6 (Version None)
Quarter: 2012Q2

REPORT INFORMATION
  Report Type: 
  Country: None (occurrence: None)
  Receive Date: 20120522
  Receipt Date: 20120510
  Transmission Date: 20120825
  Serious: Yes (Other)
  Sender: FDA-Public Use
  Company Number: 2012SP025035

PATIENT
  Age: 60 Year
  Sex: Male

DRUGS (3)
  1. PEGINTERFERON ALFA-2B [Suspect]
     Indication: HEPATITIS C
     Dosage: SC
     Route: 058
     Dates: start: 20120413, end: 20120423
  2. TELAVIC (ANTIVIRALS NOS) [Suspect]
     Indication: HEPATITIS C
     Dosage: PO
     Route: 048
     Dates: start: 20120413, end: 20120423
  3. REBETOL [Suspect]
     Indication: HEPATITIS C
     Dosage: PO
     Route: 048
     Dates: start: 20120413, end: 20120423

REACTIONS (7)
  - PYREXIA [None]
  - SKIN DISORDER [None]
  - INJECTION SITE ERYTHEMA [None]
  - BLISTER [None]
  - DIVERTICULAR PERFORATION [None]
  - PERITONITIS [None]
  - INJECTION SITE VESICLES [None]
